FAERS Safety Report 25218034 (Version 2)
Quarter: 2025Q2

REPORT INFORMATION
  Report Type: Spontaneous
  Country: US (occurrence: US)
  Receive Date: 20250421
  Receipt Date: 20250506
  Transmission Date: 20250716
  Serious: No
  Sender: ROCHE
  Company Number: US-ROCHE-10000259536

PATIENT
  Age: 85 Year
  Sex: Male

DRUGS (13)
  1. ERIVEDGE [Suspect]
     Active Substance: VISMODEGIB
     Indication: Basal cell carcinoma
     Route: 048
     Dates: start: 20241030, end: 20250414
  2. ASPIRIN [Concomitant]
     Active Substance: ASPIRIN
  3. BISACODYL [Concomitant]
     Active Substance: BISACODYL
  4. CELECOXIB [Concomitant]
     Active Substance: CELECOXIB
  5. FOLIC ACID [Concomitant]
     Active Substance: FOLIC ACID
  6. GABAPENTIN [Concomitant]
     Active Substance: GABAPENTIN
  7. Lisinoporil [Concomitant]
  8. MELATONIN [Concomitant]
     Active Substance: MELATONIN
  9. METOPROLOL TARTRATE [Concomitant]
     Active Substance: METOPROLOL TARTRATE
  10. MIRALAX [Concomitant]
     Active Substance: POLYETHYLENE GLYCOL 3350
  11. PEPCID [Concomitant]
     Active Substance: FAMOTIDINE
  12. SENNA [Concomitant]
     Active Substance: SENNOSIDES
  13. TYLENOL [Concomitant]
     Active Substance: ACETAMINOPHEN

REACTIONS (2)
  - Weight decreased [Not Recovered/Not Resolved]
  - Oral disorder [Not Recovered/Not Resolved]

NARRATIVE: CASE EVENT DATE: 20250101
